FAERS Safety Report 26193676 (Version 1)
Quarter: 2025Q4

REPORT INFORMATION
  Report Type: Spontaneous
  Country: CN (occurrence: CN)
  Receive Date: 20251224
  Receipt Date: 20251224
  Transmission Date: 20260117
  Serious: Yes (Other)
  Sender: NOVARTIS
  Company Number: CN-002147023-NVSC2025CN195080

PATIENT
  Age: 78 Year
  Sex: Female

DRUGS (2)
  1. DIOVAN [Suspect]
     Active Substance: VALSARTAN
     Indication: Hypertension
     Dosage: 80 MG, QD (1 PILL PER DAY)
     Route: 048
  2. DIOVAN [Suspect]
     Active Substance: VALSARTAN
     Dosage: 80 MG, BID (2 PILLS PER DAY (1 PILL IN THE MORNING AND 1 PILL IN THE EVENING)
     Route: 048

REACTIONS (3)
  - Blood pressure increased [Unknown]
  - Blood pressure inadequately controlled [Unknown]
  - Intentional product use issue [Unknown]
